FAERS Safety Report 25182186 (Version 1)
Quarter: 2025Q2

REPORT INFORMATION
  Report Type: Spontaneous
  Country: US (occurrence: US)
  Receive Date: 20250410
  Receipt Date: 20250410
  Transmission Date: 20250716
  Serious: No
  Sender: OPTINOSE INC
  Company Number: US-OptiNose US, Inc-2024OPT000044

PATIENT
  Age: 68 Year
  Sex: Female

DRUGS (1)
  1. XHANCE [Suspect]
     Active Substance: FLUTICASONE PROPIONATE
     Indication: Nasal polyps
     Route: 045
     Dates: end: 20240510

REACTIONS (6)
  - Rhinalgia [Recovering/Resolving]
  - Dyspepsia [Recovering/Resolving]
  - Feeling jittery [Recovered/Resolved]
  - Dysphonia [Recovering/Resolving]
  - Nasal crusting [Recovering/Resolving]
  - Nasal dryness [Recovering/Resolving]

NARRATIVE: CASE EVENT DATE: 20240409
